FAERS Safety Report 5794172-4 (Version None)
Quarter: 2008Q2

REPORT INFORMATION
  Report Type: 
  Country: None (occurrence: None)
  Receive Date: 20080627
  Receipt Date: 20080617
  Transmission Date: 20081010
  Serious: Yes (Other)
  Sender: FDA-Public Use
  Company Number: GB-PFIZER INC-2008050922

PATIENT
  Age: 69 Year
  Sex: Male

DRUGS (3)
  1. LINEZOLID [Suspect]
     Indication: ENDOCARDITIS
     Route: 042
  2. ASPIRIN [Concomitant]
     Dosage: DAILY DOSE:75MG
  3. OMEPRAZOLE [Concomitant]
     Dosage: DAILY DOSE:40MG

REACTIONS (2)
  - DUODENITIS [None]
  - MELAENA [None]
